FAERS Safety Report 6336353-7 (Version None)
Quarter: 2009Q3

REPORT INFORMATION
  Report Type: 
  Country: None (occurrence: None)
  Receive Date: 20090901
  Receipt Date: 20090820
  Transmission Date: 20100115
  Serious: Yes (Other)
  Sender: FDA-Public Use
  Company Number: BR-ELI_LILLY_AND_COMPANY-BR200908004733

PATIENT
  Sex: Male

DRUGS (1)
  1. ZYPREXA [Suspect]
     Dosage: UNK, UNKNOWN
     Route: 048

REACTIONS (5)
  - CONFUSIONAL STATE [None]
  - DECREASED APPETITE [None]
  - FEELING ABNORMAL [None]
  - HALLUCINATION, AUDITORY [None]
  - VOMITING [None]
